FAERS Safety Report 8837548 (Version 1)
Quarter: 2012Q4

REPORT INFORMATION
  Report Type: Report from Study
  Country: US (occurrence: US)
  Receive Date: 20121012
  Receipt Date: 20121012
  Transmission Date: 20130627
  Serious: Yes (Other)
  Sender: FDA-Public Use
  Company Number: US-ABBOTT-12P-163-0992260-00

PATIENT
  Sex: Male

DRUGS (4)
  1. NIASPAN (COATED) [Suspect]
     Indication: PRODUCT USED FOR UNKNOWN INDICATION
     Dosage: At bedtime
     Dates: start: 2009
  2. CRESTOR [Concomitant]
     Indication: PRODUCT USED FOR UNKNOWN INDICATION
  3. ALLOPURINOL [Concomitant]
     Indication: PRODUCT USED FOR UNKNOWN INDICATION
  4. ASA [Concomitant]
     Indication: PRODUCT USED FOR UNKNOWN INDICATION

REACTIONS (2)
  - Coronary artery occlusion [Unknown]
  - Skin burning sensation [Unknown]
